FAERS Safety Report 5900980-9 (Version None)
Quarter: 2008Q3

REPORT INFORMATION
  Report Type: 
  Country: None (occurrence: None)
  Receive Date: 20080829
  Receipt Date: 20080502
  Transmission Date: 20090109
  Serious: No
  Sender: FDA-Public Use
  Company Number: PHEH2008US04305

PATIENT
  Sex: Male

DRUGS (1)
  1. EXJADE [Suspect]
     Dates: start: 20070601, end: 20071101

REACTIONS (1)
  - RENAL DISORDER [None]
